FAERS Safety Report 14101081 (Version 2)
Quarter: 2017Q4

REPORT INFORMATION
  Report Type: Spontaneous
  Country: US (occurrence: US)
  Receive Date: 20171018
  Receipt Date: 20171102
  Transmission Date: 20180321
  Serious: Yes (Other)
  Sender: FDA-Public Use
  Company Number: US-ROCHE-2004366

PATIENT
  Age: 57 Year
  Sex: Female
  Weight: 90.8 kg

DRUGS (5)
  1. ZANAFLEX [Concomitant]
     Active Substance: TIZANIDINE HYDROCHLORIDE
     Dosage: 1-2 TABLETS AT BEDTIME AS NEEDED
     Route: 048
     Dates: start: 20130925
  2. AMPYRA [Suspect]
     Active Substance: DALFAMPRIDINE
     Indication: MULTIPLE SCLEROSIS
     Dosage: ONE TABLETX TWICE A DAY
     Route: 048
     Dates: start: 20101206
  3. HORIZANT [Concomitant]
     Active Substance: GABAPENTIN ENACARBIL
     Dosage: 1 TABLET THREE TIMES A DAY
     Route: 048
     Dates: start: 20161007
  4. ELIQUIS [Concomitant]
     Active Substance: APIXABAN
     Dosage: 1 TABLET TWICE A DAY
     Route: 048
     Dates: start: 20170105
  5. OCREVUS [Suspect]
     Active Substance: OCRELIZUMAB
     Indication: MULTIPLE SCLEROSIS
     Dosage: ONE DOSE WEEK 0 AND ONE DOSE 2 WEEKS LATER (14/SEP/2017)
     Route: 042
     Dates: start: 20170901

REACTIONS (11)
  - Drug ineffective [Unknown]
  - Neck pain [Not Recovered/Not Resolved]
  - Myalgia [Not Recovered/Not Resolved]
  - Muscular weakness [Not Recovered/Not Resolved]
  - Infusion related reaction [Not Recovered/Not Resolved]
  - Depression [Not Recovered/Not Resolved]
  - Myalgia [Not Recovered/Not Resolved]
  - Depressed mood [Not Recovered/Not Resolved]
  - Muscle tightness [Not Recovered/Not Resolved]
  - Asthenia [Not Recovered/Not Resolved]
  - Back pain [Not Recovered/Not Resolved]

NARRATIVE: CASE EVENT DATE: 201709
